FAERS Safety Report 9633932 (Version 4)
Quarter: 2013Q4

REPORT INFORMATION
  Report Type: Spontaneous
  Country: JP (occurrence: JP)
  Receive Date: 20131021
  Receipt Date: 20131230
  Transmission Date: 20140711
  Serious: Yes (Other)
  Sender: FDA-Public Use
  Company Number: JP-PFIZER INC-2013297744

PATIENT
  Age: 63 Year
  Sex: Male
  Weight: 60 kg

DRUGS (4)
  1. NORVASC [Suspect]
     Indication: HYPERTENSION
     Dosage: 5 MG, DAILY
     Route: 048
     Dates: end: 20111205
  2. NORVASC [Suspect]
     Dosage: 10 MG, 1X/DAY
     Route: 048
     Dates: start: 20111206, end: 20130808
  3. MYSLEE [Concomitant]
     Indication: SLEEP DISORDER
     Dosage: 5 MG, AS NEEDED
     Route: 048
  4. MOHRUS [Concomitant]
     Route: 062

REACTIONS (3)
  - Gingival hypertrophy [Recovering/Resolving]
  - Eating disorder [Not Recovered/Not Resolved]
  - Weight decreased [Not Recovered/Not Resolved]
